FAERS Safety Report 5793345-4 (Version None)
Quarter: 2008Q2

REPORT INFORMATION
  Report Type: 
  Country: None (occurrence: None)
  Receive Date: 20080627
  Receipt Date: 20080620
  Transmission Date: 20081010
  Serious: Yes (Hospitalization)
  Sender: FDA-Public Use
  Company Number: B0463257A

PATIENT
  Age: 11 Year
  Sex: Female
  Weight: 52.3 kg

DRUGS (4)
  1. MENACTRA [Suspect]
     Route: 030
     Dates: start: 20070226, end: 20070226
  2. CEFTIN [Suspect]
     Indication: URINARY TRACT INFECTION
     Dosage: 250MG TWICE PER DAY
     Route: 048
     Dates: start: 20070305, end: 20070312
  3. CEFZIL [Suspect]
     Indication: URINARY TRACT INFECTION
     Dosage: 500MG TWICE PER DAY
     Route: 048
     Dates: start: 20070316, end: 20070318
  4. ROCEPHIN [Suspect]
     Dosage: 500MG CONTINUOUS
     Route: 042
     Dates: start: 20070318, end: 20070320

REACTIONS (5)
  - BACK PAIN [None]
  - NEUTROPENIA [None]
  - PYREXIA [None]
  - RASH PRURITIC [None]
  - URINARY TRACT INFECTION [None]
